FAERS Safety Report 5964607-2 (Version None)
Quarter: 2008Q4

REPORT INFORMATION
  Report Type: 
  Country: None (occurrence: None)
  Receive Date: 20081124
  Receipt Date: 20081124
  Transmission Date: 20090506
  Serious: Yes (Other)
  Sender: FDA-Public Use
  Company Number: None

PATIENT
  Sex: Female
  Weight: 77.1115 kg

DRUGS (2)
  1. SERTRALINE [Suspect]
     Indication: ANXIETY
     Dosage: 1 TABLET DAILY PO
     Route: 048
     Dates: start: 20081111, end: 20081122
  2. SERTRALINE [Suspect]
     Indication: DEPRESSION
     Dosage: 1 TABLET DAILY PO
     Route: 048
     Dates: start: 20081111, end: 20081122

REACTIONS (5)
  - ANXIETY [None]
  - FRUSTRATION [None]
  - PANIC ATTACK [None]
  - PRODUCT QUALITY ISSUE [None]
  - SUICIDAL IDEATION [None]
